FAERS Safety Report 13756953 (Version 2)
Quarter: 2017Q3

REPORT INFORMATION
  Report Type: Report from Study
  Country: FR (occurrence: FR)
  Receive Date: 20170714
  Receipt Date: 20170721
  Transmission Date: 20171127
  Serious: Yes (Other)
  Sender: FDA-Public Use
  Company Number: FR-JAZZ-JPI-P-020361

PATIENT
  Age: 34 Year
  Sex: Female
  Weight: 60 kg

DRUGS (20)
  1. XYREM [Suspect]
     Active Substance: SODIUM OXYBATE
     Indication: NARCOLEPSY
     Dosage: 2.25 G, BID
     Route: 048
     Dates: start: 20120221, end: 20120229
  2. XYREM [Suspect]
     Active Substance: SODIUM OXYBATE
     Dosage: 2.75 G, BID
     Route: 048
     Dates: start: 20120525, end: 20120621
  3. XYREM [Suspect]
     Active Substance: SODIUM OXYBATE
     Dosage: 2.75 G, BID
     Route: 048
     Dates: start: 20140103, end: 20140130
  4. XYREM [Suspect]
     Active Substance: SODIUM OXYBATE
     Dosage: 3 G, BID
     Route: 048
     Dates: start: 2014
  5. XYREM [Suspect]
     Active Substance: SODIUM OXYBATE
     Indication: CATAPLEXY
     Dosage: 3 G, BID
     Route: 048
     Dates: start: 20120302, end: 20120304
  6. XYREM [Suspect]
     Active Substance: SODIUM OXYBATE
     Dosage: 2.75 G, BID
     Route: 048
     Dates: start: 20120305, end: 20120329
  7. XYREM [Suspect]
     Active Substance: SODIUM OXYBATE
     Dosage: 3 G, BID
     Route: 048
     Dates: start: 20170224
  8. KETOPROFEN. [Concomitant]
     Active Substance: KETOPROFEN
     Indication: PRODUCT USED FOR UNKNOWN INDICATION
     Dosage: 150 MG, QD
     Route: 048
  9. XYREM [Suspect]
     Active Substance: SODIUM OXYBATE
     Dosage: 2.75 G, BID
     Route: 048
     Dates: start: 20120719
  10. XYREM [Suspect]
     Active Substance: SODIUM OXYBATE
     Dosage: 2.75 G, BID
     Route: 048
     Dates: start: 20130301, end: 20130328
  11. XYREM [Suspect]
     Active Substance: SODIUM OXYBATE
     Dosage: 2.75 G, BID
     Route: 048
     Dates: start: 20120701, end: 20120717
  12. XYREM [Suspect]
     Active Substance: SODIUM OXYBATE
     Dosage: 2.75 G, BID
     Route: 048
     Dates: start: 20121207, end: 20130103
  13. XYREM [Suspect]
     Active Substance: SODIUM OXYBATE
     Dosage: SINGLE DOSE
     Route: 048
     Dates: start: 20130104, end: 20130228
  14. XYREM [Suspect]
     Active Substance: SODIUM OXYBATE
     Dosage: 2.75 G, BID
     Route: 048
     Dates: start: 20120622, end: 20120719
  15. XYREM [Suspect]
     Active Substance: SODIUM OXYBATE
     Dosage: 2.75 G, BID
     Route: 048
     Dates: start: 20120630, end: 20120630
  16. XYREM [Suspect]
     Active Substance: SODIUM OXYBATE
     Dosage: 2.75 G, BID
     Route: 048
     Dates: start: 20131109, end: 20131205
  17. NOMEGESTROL [Concomitant]
     Active Substance: NOMEGESTROL
     Indication: PRODUCT USED FOR UNKNOWN INDICATION
     Dosage: SINGLE DOSE
     Route: 048
  18. XYREM [Suspect]
     Active Substance: SODIUM OXYBATE
     Dosage: 2.75 G, BID
     Route: 048
     Dates: start: 20120718, end: 20120718
  19. XYREM [Suspect]
     Active Substance: SODIUM OXYBATE
     Dosage: 2.75 G, BID
     Route: 048
     Dates: start: 20130329, end: 20131107
  20. XYREM [Suspect]
     Active Substance: SODIUM OXYBATE
     Dosage: 3 G, BID
     Route: 048
     Dates: start: 20131108, end: 20131108

REACTIONS (18)
  - Vertigo [Unknown]
  - Skin discolouration [Unknown]
  - Back pain [Unknown]
  - Night sweats [Not Recovered/Not Resolved]
  - Raynaud^s phenomenon [Unknown]
  - Skin lesion [Unknown]
  - Asthenia [Unknown]
  - Thinking abnormal [Unknown]
  - Hyperhidrosis [Not Recovered/Not Resolved]
  - Sjogren^s syndrome [Unknown]
  - Emotional disorder [Unknown]
  - Dizziness [Unknown]
  - Decreased appetite [Unknown]
  - Pustular psoriasis [Unknown]
  - Nausea [Unknown]
  - Peripheral swelling [Unknown]
  - Drug administration error [Recovered/Resolved]
  - Migraine [Unknown]

NARRATIVE: CASE EVENT DATE: 2012
